FAERS Safety Report 7020359-9 (Version None)
Quarter: 2010Q3

REPORT INFORMATION
  Report Type: 
  Country: None (occurrence: None)
  Receive Date: 20100927
  Receipt Date: 20100916
  Transmission Date: 20110219
  Serious: Yes (Hospitalization, Other)
  Sender: FDA-Public Use
  Company Number: 013469

PATIENT
  Sex: Female
  Weight: 44 kg

DRUGS (2)
  1. CERTOLIZUMAB PEGOL [Suspect]
     Dosage: SEE IMAGE
     Route: 058
     Dates: start: 20040618, end: 20041215
  2. CERTOLIZUMAB PEGOL [Suspect]
     Dosage: SEE IMAGE
     Route: 058
     Dates: start: 20050112

REACTIONS (9)
  - ANAEMIA [None]
  - BLOOD BICARBONATE DECREASED [None]
  - BLOOD CHLORIDE INCREASED [None]
  - BLOOD SODIUM DECREASED [None]
  - CAMPYLOBACTER GASTROENTERITIS [None]
  - CONDITION AGGRAVATED [None]
  - CROHN'S DISEASE [None]
  - DYSPNOEA [None]
  - HYPOTENSION [None]
